FAERS Safety Report 7419213-X (Version None)
Quarter: 2011Q2

REPORT INFORMATION
  Report Type: 
  Country: None (occurrence: None)
  Receive Date: 20110415
  Receipt Date: 20110406
  Transmission Date: 20111010
  Serious: Yes (Other)
  Sender: FDA-Public Use
  Company Number: US-AMGEN-USASP2011018490

PATIENT
  Age: 63 Year
  Sex: Male

DRUGS (2)
  1. METHOTREXATE [Concomitant]
     Dosage: 1 MG, QWK
  2. ENBREL [Suspect]
     Indication: RHEUMATOID ARTHRITIS
     Dosage: 50 MG, QWK
     Dates: start: 20030201

REACTIONS (9)
  - IMPAIRED HEALING [None]
  - PANCREATIC NEUROENDOCRINE TUMOUR [None]
  - CORONARY ARTERY DISEASE [None]
  - THERAPEUTIC RESPONSE DECREASED [None]
  - NASOPHARYNGITIS [None]
  - PROSTATE CANCER [None]
  - INJECTION SITE PAIN [None]
  - TYPE 1 DIABETES MELLITUS [None]
  - RHEUMATOID ARTHRITIS [None]
